FAERS Safety Report 14653296 (Version 1)
Quarter: 2018Q1

REPORT INFORMATION
  Report Type: Spontaneous
  Country: FR (occurrence: FR)
  Receive Date: 20180319
  Receipt Date: 20180319
  Transmission Date: 20180509
  Serious: Yes (Other)
  Sender: FDA-Public Use
  Company Number: FR-MERCK KGAA-2044030

PATIENT
  Age: 76 Year
  Sex: Female

DRUGS (2)
  1. EXFORGE(DIOVAN AMLO) [Concomitant]
  2. NOVOTHYROX [Suspect]
     Active Substance: LEVOTHYROXINE SODIUM
     Indication: HYPOTHYROIDISM
     Dates: start: 2017, end: 201710

REACTIONS (14)
  - Myalgia [None]
  - Musculoskeletal stiffness [None]
  - Fatigue [None]
  - Irritability [None]
  - Psychiatric symptom [None]
  - Blood pressure increased [None]
  - Hot flush [None]
  - Asthenia [None]
  - Affect lability [None]
  - Hypersensitivity [None]
  - Herpes zoster [None]
  - Tinnitus [None]
  - Fatigue [None]
  - Mood swings [None]

NARRATIVE: CASE EVENT DATE: 2017
